FAERS Safety Report 19205941 (Version 2)
Quarter: 2021Q2

REPORT INFORMATION
  Report Type: Spontaneous
  Country: FR (occurrence: FR)
  Receive Date: 20210503
  Receipt Date: 20210513
  Transmission Date: 20210717
  Serious: Yes (Other)
  Sender: FDA-Public Use
  Company Number: FR-PFIZER INC-2021429916

PATIENT
  Age: 73 Year
  Sex: Male

DRUGS (5)
  1. TOVIAZ [Concomitant]
     Active Substance: FESOTERODINE FUMARATE
     Dosage: 1 DF, 1X/DAY
     Route: 048
  2. LAMPRENE [Concomitant]
     Active Substance: CLOFAZIMINE
     Dosage: 1 DF, 1X/DAY
     Route: 048
     Dates: start: 202006, end: 20201228
  3. ARIKAYCE [Concomitant]
     Active Substance: AMIKACIN
     Dosage: 70 MG, 1X/DAY
     Route: 055
     Dates: start: 202007, end: 20201228
  4. LINEZOLID. [Suspect]
     Active Substance: LINEZOLID
     Dosage: 600 MG, 1X/DAY
     Dates: end: 20201228
  5. LINEZOLID. [Suspect]
     Active Substance: LINEZOLID
     Indication: MYCOBACTERIUM ABSCESSUS INFECTION
     Dosage: 1.2 G, 1X/DAY
     Route: 048
     Dates: start: 20201116, end: 20201125

REACTIONS (1)
  - Hepatitis acute [Recovered/Resolved]

NARRATIVE: CASE EVENT DATE: 20201221
